FAERS Safety Report 7285606-7 (Version None)
Quarter: 2011Q1

REPORT INFORMATION
  Report Type: 
  Country: None (occurrence: None)
  Receive Date: 20110210
  Receipt Date: 20110207
  Transmission Date: 20110831
  Serious: Yes (Hospitalization)
  Sender: FDA-Public Use
  Company Number: A0807876A

PATIENT
  Age: 68 Year
  Sex: Male
  Weight: 80.5 kg

DRUGS (9)
  1. AVANDIA [Suspect]
     Dosage: 4MG PER DAY
     Route: 048
     Dates: start: 20051101, end: 20070501
  2. VYTORIN [Concomitant]
  3. LESCOL [Concomitant]
  4. ACCUPRIL [Concomitant]
  5. GLIPIZIDE [Concomitant]
  6. CAPTOPRIL [Concomitant]
  7. GLUCOPHAGE [Concomitant]
  8. NEURONTIN [Concomitant]
  9. PLETAL [Concomitant]

REACTIONS (3)
  - CARDIAC FAILURE CONGESTIVE [None]
  - ANGINA UNSTABLE [None]
  - CORONARY ARTERY BYPASS [None]
